FAERS Safety Report 20904382 (Version 12)
Quarter: 2024Q3

REPORT INFORMATION
  Report Type: Spontaneous
  Country: US (occurrence: US)
  Receive Date: 20220602
  Receipt Date: 20240715
  Transmission Date: 20241017
  Serious: Yes (Hospitalization, Other)
  Sender: PFIZER
  Company Number: US-PFIZER INC-202200785443

PATIENT
  Age: 13 Year
  Sex: Male

DRUGS (2)
  1. BENEFIX [Suspect]
     Active Substance: COAGULATION FACTOR IX RECOMBINANT HUMAN\ISOPROPYL ALCOHOL
     Indication: Haemorrhage
     Dosage: 3000 IU, 2X/DAY
     Route: 042
  2. BENEFIX [Suspect]
     Active Substance: COAGULATION FACTOR IX RECOMBINANT HUMAN\ISOPROPYL ALCOHOL
     Dosage: 3000 IU
     Route: 042

REACTIONS (5)
  - Accident [Unknown]
  - Haemorrhage [Unknown]
  - Knee operation [Unknown]
  - Haemarthrosis [Unknown]
  - Injury [Unknown]

NARRATIVE: CASE EVENT DATE: 20240501
